FAERS Safety Report 5028578-8 (Version None)
Quarter: 2006Q2

REPORT INFORMATION
  Report Type: 
  Country: None (occurrence: None)
  Receive Date: 20060616
  Receipt Date: 20060616
  Transmission Date: 20061013
  Serious: No
  Sender: FDA-Public Use
  Company Number: None

PATIENT
  Sex: Male

DRUGS (1)
  1. KLONOPIN [Suspect]
     Dosage: 1 TAB Q8D QTY 360 REFILLS 3

REACTIONS (2)
  - RASH [None]
  - URTICARIA [None]
